FAERS Safety Report 15374585 (Version 1)
Quarter: 2018Q3

REPORT INFORMATION
  Report Type: Spontaneous
  Country: IN (occurrence: IN)
  Receive Date: 20180912
  Receipt Date: 20180912
  Transmission Date: 20181010
  Serious: Yes (Life-Threatening, Hospitalization)
  Sender: FDA-Public Use
  Company Number: IN-MYLANLABS-2018M1065736

PATIENT
  Age: 67 Year
  Sex: Female

DRUGS (3)
  1. HYDROXYUREA. [Concomitant]
     Active Substance: HYDROXYUREA
     Indication: CHRONIC MYELOMONOCYTIC LEUKAEMIA
     Route: 065
  2. PARACETAMOL [Concomitant]
     Active Substance: ACETAMINOPHEN
     Indication: ABDOMINAL PAIN
     Dosage: 500 MG
     Route: 065
  3. MORPHINE [Suspect]
     Active Substance: MORPHINE
     Indication: ABDOMINAL PAIN
     Dosage: 5 MG, Q4H
     Route: 048

REACTIONS (3)
  - Loss of consciousness [Recovered/Resolved]
  - Overdose [Recovered/Resolved]
  - Metabolic acidosis [Recovered/Resolved]
